FAERS Safety Report 15594834 (Version 1)
Quarter: 2018Q4

REPORT INFORMATION
  Report Type: Report from Study
  Country: US (occurrence: US)
  Receive Date: 20181106
  Receipt Date: 20181106
  Transmission Date: 20190205
  Serious: Yes (Other)
  Sender: FDA-Public Use
  Company Number: US-ELI_LILLY_AND_COMPANY-US201810011711

PATIENT
  Sex: Male

DRUGS (2)
  1. WELLBUTRIN [Concomitant]
     Active Substance: BUPROPION HYDROCHLORIDE
  2. SOMATROPIN. [Suspect]
     Active Substance: SOMATROPIN
     Indication: PRODUCT USED FOR UNKNOWN INDICATION
     Dosage: 24 MG, UNKNOWN
     Route: 058
     Dates: start: 2018, end: 20181018

REACTIONS (25)
  - Proctalgia [Recovering/Resolving]
  - Thirst [Recovering/Resolving]
  - Malaise [Recovering/Resolving]
  - Anxiety [Recovering/Resolving]
  - Abdominal distension [Recovering/Resolving]
  - Rhinorrhoea [Recovering/Resolving]
  - Impulse-control disorder [Recovering/Resolving]
  - Rectal haemorrhage [Recovering/Resolving]
  - Headache [Recovering/Resolving]
  - Weight increased [Recovering/Resolving]
  - Oropharyngeal pain [Recovering/Resolving]
  - Pain in jaw [Recovering/Resolving]
  - Pain [Recovering/Resolving]
  - Body temperature fluctuation [Recovering/Resolving]
  - Arthralgia [Recovering/Resolving]
  - Paraesthesia [Recovering/Resolving]
  - Body temperature increased [Recovering/Resolving]
  - Depression [Recovering/Resolving]
  - Seizure [Recovering/Resolving]
  - Oral pain [Recovering/Resolving]
  - Glossodynia [Recovering/Resolving]
  - Genital pain [Recovering/Resolving]
  - Flushing [Recovering/Resolving]
  - Anorectal discomfort [Recovering/Resolving]
  - Hypothyroidism [Recovering/Resolving]
